FAERS Safety Report 12273291 (Version 3)
Quarter: 2016Q2

REPORT INFORMATION
  Report Type: Spontaneous
  Country: DE (occurrence: DE)
  Receive Date: 20160415
  Receipt Date: 20160602
  Transmission Date: 20160815
  Serious: Yes (Hospitalization, Other)
  Sender: FDA-Public Use
  Company Number: DE-JNJFOC-20160410891

PATIENT
  Age: 79 Year
  Sex: Male
  Weight: 71 kg

DRUGS (3)
  1. XARELTO [Suspect]
     Active Substance: RIVAROXABAN
     Indication: CEREBROVASCULAR ACCIDENT PROPHYLAXIS
     Route: 048
     Dates: end: 20160325
  2. XARELTO [Suspect]
     Active Substance: RIVAROXABAN
     Indication: ATRIAL FIBRILLATION
     Route: 048
     Dates: end: 20160325
  3. PANTOPRAZOLE [Concomitant]
     Active Substance: PANTOPRAZOLE SODIUM
     Route: 065

REACTIONS (5)
  - Off label use [Unknown]
  - Bladder tamponade [Unknown]
  - Acute abdomen [Recovered/Resolved]
  - Gastric haemorrhage [Recovered/Resolved]
  - Urinary bladder haemorrhage [Unknown]

NARRATIVE: CASE EVENT DATE: 201510
